FAERS Safety Report 5162373-4 (Version None)
Quarter: 2006Q4

REPORT INFORMATION
  Report Type: 
  Country: None (occurrence: None)
  Receive Date: 20061127
  Receipt Date: 20061127
  Transmission Date: 20070319
  Serious: Yes (Hospitalization)
  Sender: FDA-Public Use
  Company Number: None

PATIENT
  Sex: Male
  Weight: 61.6 kg

DRUGS (6)
  1. CYCLOPHOSPHAMIDE [Suspect]
     Dosage: 5400 MG
     Dates: end: 20061109
  2. DOXORUBICIN HYDROCHLORIDE [Suspect]
     Dosage: 108 MG
     Dates: end: 20061107
  3. LEUCOVORIN CALCIUM [Suspect]
     Dosage: 180 MG
     Dates: end: 20061109
  4. METHOTREXATE [Suspect]
     Dosage: 14400 MG
     Dates: end: 20061106
  5. PREDNISONE TAB [Suspect]
     Dosage: 585 MG
     Dates: end: 20061113
  6. VINCRISTINE SULFATE [Suspect]
     Dosage: 2 MG
     Dates: end: 20061106

REACTIONS (6)
  - HAEMOGLOBIN DECREASED [None]
  - MUCOSAL INFLAMMATION [None]
  - NEUTROPHIL COUNT ABNORMAL [None]
  - ORAL INTAKE REDUCED [None]
  - PLATELET COUNT DECREASED [None]
  - WHITE BLOOD CELL COUNT DECREASED [None]
